FAERS Safety Report 5210702-5 (Version None)
Quarter: 2007Q1

REPORT INFORMATION
  Report Type: 
  Country: None (occurrence: None)
  Receive Date: 20070117
  Receipt Date: 20070116
  Transmission Date: 20070707
  Serious: Yes (Disabling)
  Sender: FDA-Public Use
  Company Number: DE-GLAXOSMITHKLINE-D0051719A

PATIENT
  Age: 19 Year
  Sex: Female

DRUGS (2)
  1. DARAPRIM [Suspect]
     Indication: TOXOPLASMOSIS
     Dosage: 25MG UNKNOWN
     Route: 048
     Dates: start: 20060101, end: 20060101
  2. SULFADIAZIN [Concomitant]
     Dosage: 500MG UNKNOWN
     Route: 048

REACTIONS (5)
  - ALOPECIA [None]
  - BLOOD DISORDER [None]
  - NERVOUS SYSTEM DISORDER [None]
  - SKIN HYPERPIGMENTATION [None]
  - TONGUE ULCERATION [None]
